FAERS Safety Report 12419787 (Version 1)
Quarter: 2016Q2

REPORT INFORMATION
  Report Type: Spontaneous
  Country: JP (occurrence: JP)
  Receive Date: 20160531
  Receipt Date: 20160531
  Transmission Date: 20160815
  Serious: Yes (Other)
  Sender: FDA-Public Use
  Company Number: JP-PFIZER INC-2016275760

PATIENT
  Age: 19 Year
  Sex: Female
  Weight: 52.4 kg

DRUGS (5)
  1. THERARUBICIN /00963101/ [Suspect]
     Active Substance: PIRARUBICIN HYDROCHLORIDE
     Indication: NEUROBLASTOMA
     Dosage: UNK, CYCLIC
  2. XALKORI [Suspect]
     Active Substance: CRIZOTINIB
     Indication: NEUROBLASTOMA
     Dosage: 280 MG/M2, DAILY
     Route: 048
  3. CYCLOPHOSPHAMIDE. [Suspect]
     Active Substance: CYCLOPHOSPHAMIDE
     Indication: NEUROBLASTOMA
  4. CISPLATIN. [Suspect]
     Active Substance: CISPLATIN
     Indication: NEUROBLASTOMA
     Dosage: UNK, CYCLIC
  5. VINCRISTINE [Suspect]
     Active Substance: VINCRISTINE
     Indication: NEUROBLASTOMA
     Dosage: UNK, CYCLIC

REACTIONS (4)
  - Aspartate aminotransferase increased [Recovered/Resolved]
  - Alanine aminotransferase increased [Recovered/Resolved]
  - Product use issue [Unknown]
  - Pancytopenia [Recovered/Resolved]
